FAERS Safety Report 8193324-6 (Version None)
Quarter: 2012Q1

REPORT INFORMATION
  Report Type: 
  Country: None (occurrence: None)
  Receive Date: 20120308
  Receipt Date: 20120223
  Transmission Date: 20120608
  Serious: Yes (Hospitalization)
  Sender: FDA-Public Use
  Company Number: CH-MYLANLABS-2012S1004448

PATIENT
  Age: 29 Year
  Sex: Male

DRUGS (4)
  1. BLEOMYCIN SULFATE [Suspect]
     Indication: GERM CELL CANCER
     Route: 065
  2. CISPLATIN [Suspect]
     Indication: GERM CELL CANCER
     Route: 065
  3. CARBOPLATIN [Suspect]
     Indication: GERM CELL CANCER
     Route: 065
  4. ETOPOSIDE [Suspect]
     Indication: GERM CELL CANCER
     Route: 065

REACTIONS (1)
  - CEREBRAL VENOUS THROMBOSIS [None]
